FAERS Safety Report 10201541 (Version 1)
Quarter: 2014Q2

REPORT INFORMATION
  Report Type: Spontaneous
  Country: GB (occurrence: GB)
  Receive Date: 20140528
  Receipt Date: 20140528
  Transmission Date: 20141212
  Serious: Yes (Disabling)
  Sender: FDA-Public Use
  Company Number: GB-GLAXOSMITHKLINE-B0996202A

PATIENT
  Age: 50 Year
  Sex: Female
  Weight: 82.55 kg

DRUGS (11)
  1. ORLISTAT [Suspect]
     Indication: WEIGHT DECREASED
     Route: 048
  2. AMITRIPTYLINE [Concomitant]
  3. AMLODIPIN [Concomitant]
  4. BECONASE [Concomitant]
  5. GLUCOPHAGE [Concomitant]
  6. INDAPAMIDE [Concomitant]
  7. MEBEVERINE [Concomitant]
  8. PIRITON [Concomitant]
  9. RAMIPRIL [Concomitant]
  10. ZAPAIN [Concomitant]
  11. STATINS [Concomitant]

REACTIONS (2)
  - Irritable bowel syndrome [Not Recovered/Not Resolved]
  - Diarrhoea [Not Recovered/Not Resolved]
